FAERS Safety Report 7861178-0 (Version None)
Quarter: 2011Q4

REPORT INFORMATION
  Report Type: 
  Country: None (occurrence: None)
  Receive Date: 20111027
  Receipt Date: 20111018
  Transmission Date: 20120403
  Serious: Yes (Hospitalization, Other)
  Sender: FDA-Public Use
  Company Number: US-ASTRAZENECA-2011SE07873

PATIENT
  Age: 56 Year
  Sex: Male

DRUGS (10)
  1. METOPROLOL TARTRATE [Suspect]
     Indication: DRESSLER'S SYNDROME
  2. LAMICTAL [Concomitant]
     Indication: BIPOLAR DISORDER
  3. CYMBALTA [Concomitant]
     Indication: BIPOLAR DISORDER
  4. TRILEPTAL [Concomitant]
     Indication: BIPOLAR DISORDER
  5. NITROGLYCERIN [Concomitant]
     Indication: DRESSLER'S SYNDROME
  6. SEROQUEL [Suspect]
     Indication: BIPOLAR DISORDER
     Dosage: 1 TABLET AM AND 2 TABLETS HS
     Route: 048
  7. PREDNISONE [Concomitant]
  8. MIRAPEX [Concomitant]
     Indication: BIPOLAR DISORDER
  9. PLAVIX [Concomitant]
     Indication: DRESSLER'S SYNDROME
  10. SIMVASTATIN [Concomitant]
     Indication: DRESSLER'S SYNDROME

REACTIONS (3)
  - MYOCARDIAL INFARCTION [None]
  - VIITH NERVE PARALYSIS [None]
  - INSOMNIA [None]
